FAERS Safety Report 12470736 (Version 4)
Quarter: 2016Q3

REPORT INFORMATION
  Report Type: Spontaneous
  Country: US (occurrence: US)
  Receive Date: 20160616
  Receipt Date: 20160720
  Transmission Date: 20161109
  Serious: Yes (Other)
  Sender: FDA-Public Use
  Company Number: US-TEVA-668503ACC

PATIENT
  Age: 16 Year
  Sex: Female
  Weight: 106.24 kg

DRUGS (1)
  1. TAKE ACTION [Suspect]
     Active Substance: LEVONORGESTREL
     Indication: POST COITAL CONTRACEPTION
     Dates: start: 20160610, end: 20160610

REACTIONS (5)
  - Prescription drug used without a prescription [Unknown]
  - Intentional product misuse [Unknown]
  - Intentional product use issue [Unknown]
  - Foetal exposure timing unspecified [Unknown]
  - Pregnancy after post coital contraception [Unknown]

NARRATIVE: CASE EVENT DATE: 20160610
